FAERS Safety Report 10203733 (Version 2)
Quarter: 2014Q2

REPORT INFORMATION
  Report Type: Spontaneous
  Country: US (occurrence: None)
  Receive Date: 20140523
  Receipt Date: 20140623
  Transmission Date: 20141212
  Serious: Yes (Other)
  Sender: FDA-Public Use
  Company Number: 2014P1004293

PATIENT
  Age: 18 Year
  Sex: Female

DRUGS (3)
  1. MYORISAN 40 MG (ISOTRETINOIN) CAPSULE [Suspect]
     Indication: ACNE
     Route: 048
     Dates: start: 20131211, end: 201401
  2. MICROGESTIN [Suspect]
     Dosage: 1 TABLETS, 1X/DAY
  3. ASPIRIN [Suspect]
     Dosage: 20 TABLETS, ONCE
     Dates: start: 20140504, end: 20140504

REACTIONS (10)
  - Irritability [None]
  - Suicide attempt [None]
  - Overdose [None]
  - Exposure via ingestion [None]
  - Impulsive behaviour [None]
  - Intentional overdose [None]
  - Hypokalaemia [None]
  - Dehydration [None]
  - Nausea [None]
  - Vomiting [None]
